FAERS Safety Report 9769565 (Version 2)
Quarter: 2013Q4

REPORT INFORMATION
  Report Type: Spontaneous
  Country: US (occurrence: US)
  Receive Date: 20131218
  Receipt Date: 20131218
  Transmission Date: 20140711
  Serious: No
  Sender: FDA-Public Use
  Company Number: US-SHIONOGI, INC-2013000350

PATIENT
  Age: 58 Year
  Sex: Female
  Weight: 72.56 kg

DRUGS (8)
  1. OSPHENA [Suspect]
     Indication: OSTEOPENIA
     Dosage: 60 MG, QD
     Route: 048
     Dates: start: 201310
  2. OSPHENA [Suspect]
     Indication: OFF LABEL USE
  3. OSPHENA [Suspect]
     Indication: VULVOVAGINAL DRYNESS
  4. ARMOUR THYROID [Concomitant]
     Indication: BASEDOW^S DISEASE
     Dosage: UNK
     Route: 065
  5. FISH OIL [Concomitant]
     Indication: PRODUCT USED FOR UNKNOWN INDICATION
     Dosage: UNK
     Route: 065
  6. CALCIUM +D [Concomitant]
     Indication: PRODUCT USED FOR UNKNOWN INDICATION
     Dosage: UNK
     Route: 065
  7. PROBIOTICS [Concomitant]
     Indication: IMMUNE SYSTEM DISORDER
     Dosage: UNK
     Route: 065
  8. DAILY VITAMINS [Concomitant]
     Indication: PRODUCT USED FOR UNKNOWN INDICATION
     Dosage: UNK
     Route: 065

REACTIONS (4)
  - Feeling of body temperature change [Recovering/Resolving]
  - Asthenia [Not Recovered/Not Resolved]
  - Arthralgia [Not Recovered/Not Resolved]
  - Off label use [Not Recovered/Not Resolved]
